FAERS Safety Report 5605919-1 (Version None)
Quarter: 2008Q1

REPORT INFORMATION
  Report Type: 
  Country: None (occurrence: None)
  Receive Date: 20080125
  Receipt Date: 20080114
  Transmission Date: 20080703
  Serious: Yes (Hospitalization, Other)
  Sender: FDA-Public Use
  Company Number: 230077J08USA

PATIENT
  Age: 67 Year
  Sex: Female
  Weight: 54.8399 kg

DRUGS (7)
  1. REBIF [Suspect]
     Indication: MULTIPLE SCLEROSIS
     Dosage: 44 MCG, 3 IN 1 WEEKS, SUBCUTANEOUS
     Route: 058
     Dates: start: 20070501
  2. TENORMIN [Concomitant]
  3. ELAVIL [Concomitant]
  4. LASIX                             (FUROSEMIDE /00032601/) [Concomitant]
  5. TEGRETOL [Concomitant]
  6. TOPAMAX [Concomitant]
  7. NEURONTIN [Concomitant]

REACTIONS (1)
  - LOW DENSITY LIPOPROTEIN INCREASED [None]
